FAERS Safety Report 16267220 (Version 1)
Quarter: 2019Q2

REPORT INFORMATION
  Report Type: Report from Study
  Country: GB (occurrence: GB)
  Receive Date: 20190502
  Receipt Date: 20190502
  Transmission Date: 20190711
  Serious: Yes (Other)
  Sender: FDA-Public Use
  Company Number: PHHY2019GB100053

PATIENT
  Sex: Female

DRUGS (1)
  1. HYRIMOZ [Suspect]
     Active Substance: ADALIMUMAB-ADAZ
     Indication: COLITIS ULCERATIVE
     Dosage: 40 MG, FORTNIGHTLY
     Route: 065
     Dates: start: 20190405

REACTIONS (3)
  - Abdominal pain [Unknown]
  - Diarrhoea haemorrhagic [Unknown]
  - Fatigue [Unknown]
